FAERS Safety Report 6726545-7 (Version None)
Quarter: 2010Q2

REPORT INFORMATION
  Report Type: 
  Country: None (occurrence: None)
  Receive Date: 20100514
  Receipt Date: 20100204
  Transmission Date: 20101027
  Serious: Yes (Other)
  Sender: FDA-Public Use
  Company Number: US-BRISTOL-MYERS SQUIBB COMPANY-14953962

PATIENT
  Age: 57 Year
  Sex: Female
  Weight: 47 kg

DRUGS (2)
  1. IXEMPRA KIT [Suspect]
     Indication: BREAST CANCER
     Dates: start: 20100114, end: 20100121
  2. XELODA [Concomitant]
     Dates: end: 20100121

REACTIONS (1)
  - MALIGNANT NEOPLASM PROGRESSION [None]
